FAERS Safety Report 13877817 (Version 2)
Quarter: 2017Q3

REPORT INFORMATION
  Report Type: Spontaneous
  Country: US (occurrence: US)
  Receive Date: 20170817
  Receipt Date: 20170830
  Transmission Date: 20171127
  Serious: Yes (Hospitalization)
  Sender: FDA-Public Use
  Company Number: US-AMGEN-USASP2017123321

PATIENT
  Age: 70 Year
  Sex: Male
  Weight: 91 kg

DRUGS (18)
  1. PANTOPRAZOLE [Concomitant]
     Active Substance: PANTOPRAZOLE
     Indication: ABDOMINAL DISCOMFORT
     Dosage: 40 MG, BID
  2. ALPRAZOLAM. [Concomitant]
     Active Substance: ALPRAZOLAM
     Indication: ANXIETY
     Dosage: 25 MG, AS NECESSARY
  3. MIDODRINE [Concomitant]
     Active Substance: MIDODRINE
     Dosage: 2 TABLETS, 5 MG, BID
     Route: 048
     Dates: start: 20160821
  4. GABAPENTIN. [Concomitant]
     Active Substance: GABAPENTIN
     Indication: PARAESTHESIA
  5. MULTIVITAMIN [Concomitant]
     Active Substance: VITAMINS
     Dosage: ONE DOSE, QD
  6. ZOFRAN [Concomitant]
     Active Substance: ONDANSETRON HYDROCHLORIDE
     Indication: NAUSEA
     Dosage: 4 MG, Q6H
     Route: 060
  7. DOCUSATE SODIUM. [Concomitant]
     Active Substance: DOCUSATE SODIUM
     Indication: CONSTIPATION
     Dosage: ONE CAPSULE, QD
     Dates: start: 20160821
  8. GABAPENTIN. [Concomitant]
     Active Substance: GABAPENTIN
     Indication: HYPOAESTHESIA
     Dosage: 300 MG, BID
  9. WARFARIN [Concomitant]
     Active Substance: WARFARIN
     Indication: BLOOD DISORDER
     Dosage: 5 MG, QD
  10. ACETAMINOPHEN. [Concomitant]
     Active Substance: ACETAMINOPHEN
     Dosage: 1000 MG EVERY TIME
     Dates: start: 20160821
  11. MIRALAX [Concomitant]
     Active Substance: POLYETHYLENE GLYCOL 3350
     Indication: FAECES HARD
     Dosage: 17 G, BID
  12. TYLENOL [Concomitant]
     Active Substance: ACETAMINOPHEN
     Indication: PAIN
     Dosage: 2 TABLETS, 500 MG, AS NECESSARY
     Dates: start: 20160821
  13. SENSIPAR [Suspect]
     Active Substance: CINACALCET HYDROCHLORIDE
     Indication: HYPERPARATHYROIDISM SECONDARY
     Dosage: 30 MG, QD
     Route: 048
     Dates: start: 20170712, end: 20170724
  14. THIAMINE. [Concomitant]
     Active Substance: THIAMINE
     Dosage: 100 MG, QD
  15. REGLAN [Concomitant]
     Active Substance: METOCLOPRAMIDE HYDROCHLORIDE
     Dosage: 5 MG, QID
     Route: 048
     Dates: start: 20160821
  16. LEVEMIR [Concomitant]
     Active Substance: INSULIN DETEMIR
     Indication: DIABETES MELLITUS
     Dosage: 10 UNIT, QD
  17. OXYCODONE [Concomitant]
     Active Substance: OXYCODONE
     Indication: PAIN
     Dosage: 1-2 TABLETS, 5/325 MG
     Dates: start: 20160821
  18. AURYXIA [Concomitant]
     Active Substance: TETRAFERRIC TRICITRATE DECAHYDRATE
     Indication: BLOOD PHOSPHORUS DECREASED
     Dosage: 2 WITH EACH MEAL, TID
     Dates: start: 201612

REACTIONS (2)
  - Hepatic enzyme increased [Recovered/Resolved]
  - Jaundice [Unknown]

NARRATIVE: CASE EVENT DATE: 201707
